FAERS Safety Report 8743037 (Version 2)
Quarter: 2012Q4

REPORT INFORMATION
  Report Type: Report from Study
  Country: US (occurrence: US)
  Receive Date: 20120824
  Receipt Date: 20120911
  Transmission Date: 20130627
  Serious: Yes (Hospitalization)
  Sender: FDA-Public Use
  Company Number: US-JNJFOC-20120712699

PATIENT
  Age: 56 None
  Sex: Female

DRUGS (8)
  1. SIMPONI [Suspect]
     Indication: PRODUCT USED FOR UNKNOWN INDICATION
     Route: 058
     Dates: start: 20110911, end: 20111111
  2. ACIPHEX [Concomitant]
     Indication: GASTROOESOPHAGEAL REFLUX DISEASE
     Dates: start: 2008
  3. LIBRAX [Concomitant]
     Indication: GASTROOESOPHAGEAL REFLUX DISEASE
     Dates: start: 2008
  4. ULTRAM [Concomitant]
     Indication: ARTHRALGIA
     Dates: start: 2008
  5. VITAMIN B2 [Concomitant]
     Indication: MIGRAINE
     Dates: start: 2008
  6. MAGNESIUM [Concomitant]
     Indication: MIGRAINE
     Dates: start: 2008
  7. PAMELOR [Concomitant]
     Indication: THROMBOSIS PROPHYLAXIS
     Dates: start: 20111103
  8. COUMADIN [Concomitant]
     Indication: THROMBOSIS PROPHYLAXIS
     Dates: start: 20111103

REACTIONS (8)
  - Neoplasm [Not Recovered/Not Resolved]
  - Pulmonary embolism [Recovered/Resolved]
  - Herpes zoster [Unknown]
  - Mycobacterium marinum infection [Not Recovered/Not Resolved]
  - Cellulitis [Not Recovered/Not Resolved]
  - Limb operation [Unknown]
  - Thrombosis [Unknown]
  - Infection [Unknown]
